FAERS Safety Report 6690025-8 (Version None)
Quarter: 2010Q2

REPORT INFORMATION
  Report Type: 
  Country: None (occurrence: None)
  Receive Date: 20100421
  Receipt Date: 20100412
  Transmission Date: 20101027
  Serious: Yes (Other)
  Sender: FDA-Public Use
  Company Number: PHHY2010JP02324

PATIENT
  Sex: Male
  Weight: 64 kg

DRUGS (4)
  1. ZOMETA [Suspect]
     Indication: METASTASES TO BONE
     Dosage: 4 MG, QMO
     Dates: start: 20080118, end: 20080523
  2. ZOLADEX [Concomitant]
     Dosage: UNK
     Route: 042
     Dates: start: 20040827
  3. ETHINYL ESTRADIOL [Concomitant]
     Indication: PROSTATE CANCER
     Dosage: 3 DF, UNK
     Route: 048
     Dates: start: 20071207, end: 20081114
  4. TAXOTERE [Concomitant]
     Indication: PROSTATE CANCER
     Dosage: UNK
     Route: 042
     Dates: start: 20081121

REACTIONS (5)
  - CONDITION AGGRAVATED [None]
  - OPEN WOUND [None]
  - OSTEOMYELITIS [None]
  - PERIODONTAL DISEASE [None]
  - TOOTH EXTRACTION [None]
